FAERS Safety Report 4695755-5 (Version None)
Quarter: 2005Q2

REPORT INFORMATION
  Report Type: 
  Country: None (occurrence: None)
  Receive Date: 20050621
  Receipt Date: 19951208
  Transmission Date: 20051028
  Serious: Yes (Hospitalization, Other)
  Sender: FDA-Public Use
  Company Number: M054802

PATIENT
  Age: 47 Year
  Sex: Female
  Weight: 98 kg

DRUGS (3)
  1. SERZONE [Suspect]
     Route: 048
     Dates: start: 19950901, end: 19951114
  2. METHADONE HCL [Concomitant]
  3. DOXEPIN HCL [Concomitant]
     Indication: PAIN

REACTIONS (6)
  - HEPATIC CIRRHOSIS [None]
  - HEPATIC FAILURE [None]
  - HEPATITIS [None]
  - LIVER TRANSPLANT [None]
  - LIVER TRANSPLANT REJECTION [None]
  - RENAL FAILURE [None]
